FAERS Safety Report 7743466-1 (Version None)
Quarter: 2011Q3

REPORT INFORMATION
  Report Type: 
  Country: None (occurrence: None)
  Receive Date: 20110909
  Receipt Date: 20110909
  Transmission Date: 20111222
  Serious: Yes (Hospitalization)
  Sender: FDA-Public Use
  Company Number: None

PATIENT
  Sex: Male
  Weight: 81.56 kg

DRUGS (3)
  1. ERBITUX [Suspect]
     Dosage: 996 MG
  2. TAXOL [Suspect]
     Dosage: 540 ML
  3. BEVACIZUMAB (RHUMAB VEGF) [Suspect]
     Dosage: 1218 MG

REACTIONS (1)
  - LARGE INTESTINE PERFORATION [None]
